FAERS Safety Report 25749106 (Version 1)
Quarter: 2025Q3

REPORT INFORMATION
  Report Type: Spontaneous
  Country: US (occurrence: US)
  Receive Date: 20250902
  Receipt Date: 20250902
  Transmission Date: 20251020
  Serious: No
  Sender: SANOFI AVENTIS
  Company Number: US-SA-2025SA260612

PATIENT
  Sex: Male

DRUGS (5)
  1. DUPIXENT [Suspect]
     Active Substance: DUPILUMAB
     Indication: Dermatitis atopic
     Dosage: 300 MG, QOW
     Route: 058
  2. GABAPENTIN [Concomitant]
     Active Substance: GABAPENTIN
  3. MOUNJARO [Concomitant]
     Active Substance: TIRZEPATIDE
  4. NOVOLOG [Concomitant]
     Active Substance: INSULIN ASPART
  5. TOUJEO MAX [Concomitant]
     Active Substance: INSULIN GLARGINE

REACTIONS (3)
  - Musculoskeletal discomfort [Unknown]
  - Pruritus [Recovering/Resolving]
  - Therapeutic product effect incomplete [Unknown]
